FAERS Safety Report 21713880 (Version 1)
Quarter: 2022Q4

REPORT INFORMATION
  Report Type: Spontaneous
  Country: US (occurrence: None)
  Receive Date: 20221208
  Receipt Date: 20221208
  Transmission Date: 20230113
  Serious: No
  Sender: FDA-Public Use
  Company Number: None

PATIENT
  Sex: Male

DRUGS (1)
  1. WELIREG [Suspect]
     Active Substance: BELZUTIFAN
     Indication: Metastases to lung
     Dosage: OTHER FREQUENCY : QAM;?
     Route: 048

REACTIONS (2)
  - Disease progression [None]
  - Therapy cessation [None]
